FAERS Safety Report 13061578 (Version 1)
Quarter: 2016Q4

REPORT INFORMATION
  Report Type: Spontaneous
  Country: US (occurrence: US)
  Receive Date: 20161226
  Receipt Date: 20161226
  Transmission Date: 20170207
  Serious: No
  Sender: FDA-Public Use
  Company Number: US-NOVEN PHARMACEUTICALS, INC.-US2016000970

PATIENT

DRUGS (2)
  1. MINIVELLE [Suspect]
     Active Substance: ESTRADIOL
     Indication: PRODUCT USED FOR UNKNOWN INDICATION
     Dosage: 0.035 MG, UNKNOWN
     Route: 062
     Dates: start: 201403
  2. LUNESTA [Concomitant]
     Active Substance: ESZOPICLONE

REACTIONS (2)
  - No adverse event [Unknown]
  - Off label use [Unknown]
